FAERS Safety Report 6464498-X (Version None)
Quarter: 2009Q4

REPORT INFORMATION
  Report Type: 
  Country: None (occurrence: None)
  Receive Date: 20091201
  Receipt Date: 20091125
  Transmission Date: 20100525
  Serious: Yes (Other)
  Sender: FDA-Public Use
  Company Number: JP-PFIZER INC-2009303222

PATIENT

DRUGS (1)
  1. NORVASC [Suspect]

REACTIONS (1)
  - HAEMOLYTIC ANAEMIA [None]
